FAERS Safety Report 7526018-8 (Version None)
Quarter: 2011Q2

REPORT INFORMATION
  Report Type: 
  Country: None (occurrence: None)
  Receive Date: 20110606
  Receipt Date: 20110523
  Transmission Date: 20111010
  Serious: Yes (Hospitalization, Other)
  Sender: FDA-Public Use
  Company Number: KR-PFIZER INC-KR-WYE-H11384309

PATIENT
  Age: 67 Year
  Sex: Female

DRUGS (1)
  1. AMIODARONE HCL [Suspect]
     Indication: ARRHYTHMIA
     Dosage: 400 MG, DAILY
     Route: 048

REACTIONS (4)
  - HEPATIC FAILURE [None]
  - JAUNDICE [None]
  - RENAL FAILURE [None]
  - HEPATIC ENCEPHALOPATHY [None]
